FAERS Safety Report 7534308-8 (Version None)
Quarter: 2011Q2

REPORT INFORMATION
  Report Type: 
  Country: None (occurrence: None)
  Receive Date: 20110608
  Receipt Date: 20070226
  Transmission Date: 20111010
  Serious: Yes (Death, Hospitalization)
  Sender: FDA-Public Use
  Company Number: PHHO2005CA02276

PATIENT
  Sex: Male
  Weight: 62.7 kg

DRUGS (10)
  1. ASAPHEN [Concomitant]
     Dosage: 80 MG, UNK
  2. LACTULOSE [Concomitant]
     Dosage: UNK
  3. CALCIUM CARBONATE [Concomitant]
     Dosage: UNK
  4. SENOKOT /UNK/ [Concomitant]
     Dosage: UNK
  5. FOSAMAX [Concomitant]
     Dosage: 70 MG, UNK
  6. SINEMET [Concomitant]
     Dosage: 100/25, TID
  7. CLOZAPINE [Suspect]
     Indication: HALLUCINATION
     Dosage: 12.5 MG QAM AND 37.5 MG QHS
     Route: 048
     Dates: start: 20040623
  8. COLACE [Concomitant]
     Dosage: UNK
  9. ATIVAN [Concomitant]
     Dosage: 1 MG, PRN QHS
  10. OSTOFORTE [Concomitant]
     Dosage: UNK

REACTIONS (4)
  - DELIRIUM [None]
  - EYE INFECTION [None]
  - RHINORRHOEA [None]
  - PNEUMONIA [None]
